FAERS Safety Report 17540700 (Version 1)
Quarter: 2020Q1

REPORT INFORMATION
  Report Type: Spontaneous
  Country: CA (occurrence: CA)
  Receive Date: 20200313
  Receipt Date: 20200313
  Transmission Date: 20200409
  Serious: Yes (Death, Other)
  Sender: FDA-Public Use
  Company Number: CA-TEVA-2020-CA-1201445

PATIENT
  Age: 89 Year
  Sex: Male

DRUGS (1)
  1. METHOTREXATE. [Suspect]
     Active Substance: METHOTREXATE
     Indication: ARTHRITIS
     Dosage: 7.5 MILLIGRAM DAILY;
     Route: 065

REACTIONS (4)
  - Accidental overdose [Fatal]
  - Laryngeal inflammation [Fatal]
  - Product dispensing error [Fatal]
  - Upper airway obstruction [Fatal]
